FAERS Safety Report 5926669-8 (Version None)
Quarter: 2008Q4

REPORT INFORMATION
  Report Type: 
  Country: None (occurrence: None)
  Receive Date: 20081022
  Receipt Date: 20081021
  Transmission Date: 20090506
  Serious: Yes (Other)
  Sender: FDA-Public Use
  Company Number: GB-ROCHE-591768

PATIENT
  Sex: Female
  Weight: 66.2 kg

DRUGS (5)
  1. ORLISTAT [Suspect]
     Indication: OBESITY
     Route: 048
     Dates: start: 20071026
  2. BENDROFLUMETHIAZIDE [Concomitant]
     Indication: HYPERTENSION
     Route: 048
  3. DILTIAZEM HYDROCHLORIDE [Concomitant]
     Indication: HYPERTENSION
     Route: 048
  4. ASPIRIN [Concomitant]
     Route: 048
  5. PERINDOPRIL [Concomitant]
     Indication: HYPERTENSION
     Route: 048

REACTIONS (2)
  - EXTREMITY CONTRACTURE [None]
  - INTERVERTEBRAL DISC COMPRESSION [None]
